FAERS Safety Report 19988057 (Version 1)
Quarter: 2021Q4

REPORT INFORMATION
  Report Type: Spontaneous
  Country: US (occurrence: US)
  Receive Date: 20211022
  Receipt Date: 20211022
  Transmission Date: 20220304
  Serious: Yes (Hospitalization, Other)
  Sender: FDA-Public Use
  Company Number: US-OTSUKA-2021_036491

PATIENT
  Sex: Female

DRUGS (1)
  1. INQOVI [Suspect]
     Active Substance: CEDAZURIDINE\DECITABINE
     Indication: Myelodysplastic syndrome
     Dosage: ONE 35-100MG TABLET MONDAY, WEDNESDAY, AND FRIDAY
     Route: 048

REACTIONS (2)
  - Appendiceal abscess [Recovered/Resolved]
  - Pancytopenia [Not Recovered/Not Resolved]
